FAERS Safety Report 4347852-1 (Version None)
Quarter: 2004Q2

REPORT INFORMATION
  Report Type: 
  Country: None (occurrence: None)
  Receive Date: 20040422
  Receipt Date: 20040310
  Transmission Date: 20050107
  Serious: Yes (Life-Threatening, Hospitalization, Disabling, Other)
  Sender: FDA-Public Use
  Company Number: OMPQ-PR-0403S-0218

PATIENT
  Age: 34 Year
  Sex: Female

DRUGS (2)
  1. OMNIPAQUE 70 [Suspect]
     Indication: INTERVERTEBRAL DISC PROTRUSION
     Dosage: SINGLE DOSE, I.T.
     Route: 037
     Dates: start: 20030601, end: 20030601
  2. OMNIPAQUE 70 [Suspect]
     Indication: ROAD TRAFFIC ACCIDENT
     Dosage: SINGLE DOSE, I.T.
     Route: 037
     Dates: start: 20030601, end: 20030601

REACTIONS (30)
  - ANXIETY [None]
  - APPENDICITIS [None]
  - APPENDICITIS PERFORATED [None]
  - ARACHNOIDITIS [None]
  - CANDIDIASIS [None]
  - CYST [None]
  - DRUG INEFFECTIVE [None]
  - DYSPNOEA [None]
  - FEELING ABNORMAL [None]
  - GASTROINTESTINAL DISORDER [None]
  - GASTROINTESTINAL INFECTION [None]
  - HEADACHE [None]
  - HYPOAESTHESIA [None]
  - INFLUENZA LIKE ILLNESS [None]
  - INFREQUENT BOWEL MOVEMENTS [None]
  - INJECTION SITE PAIN [None]
  - INJECTION SITE STINGING [None]
  - MENTAL DISORDER [None]
  - NAUSEA [None]
  - NERVE INJURY [None]
  - OROPHARYNGEAL SWELLING [None]
  - PARAESTHESIA [None]
  - PERONEAL NERVE PALSY [None]
  - RASH [None]
  - REFUSAL OF TREATMENT BY PATIENT [None]
  - RHINORRHOEA [None]
  - SENSITIVITY OF TEETH [None]
  - TEMPERATURE INTOLERANCE [None]
  - TINNITUS [None]
  - VOMITING [None]
